FAERS Safety Report 7798474-1 (Version None)
Quarter: 2011Q4

REPORT INFORMATION
  Report Type: 
  Country: None (occurrence: None)
  Receive Date: 20111005
  Receipt Date: 20111003
  Transmission Date: 20120403
  Serious: Yes (Other)
  Sender: FDA-Public Use
  Company Number: US-AMGEN-USASP2011037542

PATIENT
  Age: 56 Year
  Sex: Female

DRUGS (6)
  1. CALCIUM + VITAMIN D                /01483701/ [Concomitant]
     Dosage: 2 DF, BID
     Route: 048
  2. VICODIN [Concomitant]
     Indication: PAIN
     Dosage: 1 DF, Q4H
     Route: 048
  3. RESTON                             /00000401/ [Concomitant]
     Indication: RESTLESS LEGS SYNDROME
     Dosage: 30 MG, QD
     Route: 048
  4. SYNTHROID [Concomitant]
     Indication: HYPOTHYROIDISM
     Dosage: 112 MUG, QD
     Route: 048
  5. LEXAPRO [Concomitant]
     Indication: DEPRESSION
     Dosage: 20 MG, QD
     Route: 048
  6. NPLATE [Suspect]
     Indication: IDIOPATHIC THROMBOCYTOPENIC PURPURA
     Dosage: 10 MUG/KG, QWK
     Route: 058
     Dates: start: 20100105

REACTIONS (2)
  - HYPOVITAMINOSIS [None]
  - BIOPSY BONE MARROW ABNORMAL [None]
